FAERS Safety Report 21954136 (Version 1)
Quarter: 2023Q1

REPORT INFORMATION
  Report Type: Spontaneous
  Country: FR (occurrence: FR)
  Receive Date: 20230204
  Receipt Date: 20230204
  Transmission Date: 20230418
  Serious: Yes (Hospitalization, Other)
  Sender: FDA-Public Use
  Company Number: None

PATIENT
  Age: 63 Year
  Sex: Male
  Weight: 69 kg

DRUGS (12)
  1. PREDNISONE [Suspect]
     Active Substance: PREDNISONE
     Indication: Renal transplant
     Dosage: 37.5 MG, QD
     Route: 048
     Dates: start: 20221116, end: 20221118
  2. LIDOCAINE HYDROCHLORIDE [Suspect]
     Active Substance: LIDOCAINE HYDROCHLORIDE
     Indication: Local anaesthesia
     Dosage: UNK, QD (LIDOCAINE 2%)
     Route: 042
     Dates: start: 20221117, end: 20221117
  3. CELLCEPT [Suspect]
     Active Substance: MYCOPHENOLATE MOFETIL
     Indication: Renal transplant
     Dosage: 1 G, Q12H (COMPRIME)
     Route: 048
     Dates: start: 20221116, end: 20221118
  4. ENVARSUS XR [Suspect]
     Active Substance: TACROLIMUS
     Indication: Renal transplant
     Dosage: 8 MG, QD (COMPRIME A LIBERATION PROLONGEE)
     Route: 048
     Dates: start: 20221116, end: 20221118
  5. ATORVASTATIN [Concomitant]
     Active Substance: ATORVASTATIN
     Indication: Dyslipidaemia
     Dosage: 20 MG, QD
     Route: 048
  6. ALLOPURINOL [Concomitant]
     Active Substance: ALLOPURINOL
     Indication: Gout
     Dosage: 80 MG, QD
     Route: 048
  7. CHOLECALCIFEROL [Concomitant]
     Active Substance: CHOLECALCIFEROL
     Indication: Vitamin supplementation
     Dosage: 100000 IU, Q2MO
     Route: 048
  8. LERCANIDIPINE HYDROCHLORIDE [Concomitant]
     Active Substance: LERCANIDIPINE HYDROCHLORIDE
     Indication: Hypertension
     Dosage: 10 MG, QD
     Route: 048
  9. KAYEXALATE [Concomitant]
     Active Substance: SODIUM POLYSTYRENE SULFONATE
     Indication: Hyperkalaemia
     Dosage: 15 G, QD
     Route: 048
  10. PANTOPRAZOLE [Concomitant]
     Active Substance: PANTOPRAZOLE
     Indication: Product used for unknown indication
     Dosage: 40 MG, QD
     Route: 065
     Dates: start: 20221117, end: 20221122
  11. ENALAPRIL MALEATE\HYDROCHLOROTHIAZIDE [Concomitant]
     Active Substance: ENALAPRIL MALEATE\HYDROCHLOROTHIAZIDE
     Indication: Hypertension
     Dosage: UNK, QD (1 CP/JOUR20MG D^ENALAPRIL/JOUR 12,5MG D^HYDROCHLOROTHIAZIDE/JOUR, COMPRIME SECABLE)
     Route: 065
  12. RITUXIMAB [Concomitant]
     Active Substance: RITUXIMAB
     Indication: Renal transplant
     Dosage: 375 MG/M2, QD
     Route: 042
     Dates: start: 20221031, end: 20221031

REACTIONS (1)
  - Seizure [Recovered/Resolved]

NARRATIVE: CASE EVENT DATE: 20221117
